FAERS Safety Report 18243288 (Version 1)
Quarter: 2020Q3

REPORT INFORMATION
  Report Type: Report from Study
  Country: FR (occurrence: FR)
  Receive Date: 20200908
  Receipt Date: 20200908
  Transmission Date: 20201103
  Serious: Yes (Other)
  Sender: FDA-Public Use
  Company Number: FR-JNJFOC-20200843688

PATIENT

DRUGS (2)
  1. REMICADE [Suspect]
     Active Substance: INFLIXIMAB
     Indication: IGA NEPHROPATHY
  2. REMICADE [Suspect]
     Active Substance: INFLIXIMAB
     Indication: ANKYLOSING SPONDYLITIS
     Route: 042

REACTIONS (6)
  - Pericarditis [Unknown]
  - Cutaneous vasculitis [Unknown]
  - Renal cancer [Unknown]
  - Drug ineffective [Unknown]
  - Injection site reaction [Unknown]
  - Psoriasis [Unknown]
